FAERS Safety Report 8254854-1 (Version None)
Quarter: 2012Q1

REPORT INFORMATION
  Report Type: 
  Country: None (occurrence: None)
  Receive Date: 20120322
  Receipt Date: 20120123
  Transmission Date: 20120608
  Serious: Yes (Hospitalization)
  Sender: FDA-Public Use
  Company Number: UTC-013773

PATIENT
  Age: 52 Year
  Sex: Male
  Weight: 85.3 kg

DRUGS (3)
  1. COUMADIN [Concomitant]
  2. TYVASO [Suspect]
     Indication: PORTAL HYPERTENSION
     Dosage: 216 MCG (54 MCG, 4 IN 1 D), INHALATION
     Route: 055
     Dates: start: 20110906
  3. ADCIRCA [Concomitant]

REACTIONS (4)
  - THROAT IRRITATION [None]
  - VERTIGO [None]
  - FALL [None]
  - HEAD INJURY [None]
